FAERS Safety Report 18603974 (Version 1)
Quarter: 2020Q4

REPORT INFORMATION
  Report Type: Spontaneous
  Country: CN (occurrence: CN)
  Receive Date: 20201211
  Receipt Date: 20201211
  Transmission Date: 20210114
  Serious: Yes (Other)
  Sender: FDA-Public Use
  Company Number: CN-ROCHE-2728028

PATIENT
  Age: 62 Year
  Sex: Male

DRUGS (27)
  1. MABTHERA [Suspect]
     Active Substance: RITUXIMAB
     Indication: MANTLE CELL LYMPHOMA
     Route: 065
     Dates: start: 20170628
  2. ETOPOSIDE. [Concomitant]
     Active Substance: ETOPOSIDE
     Indication: MANTLE CELL LYMPHOMA
     Dates: start: 20171101
  3. IBRUTINIB [Concomitant]
     Active Substance: IBRUTINIB
     Indication: MANTLE CELL LYMPHOMA
     Route: 048
     Dates: start: 20180125
  4. RECOMBINANT HUMAN GRANULOCYTE COLONY STIMULATING FACTOR [Concomitant]
     Active Substance: GRANULOCYTE COLONY-STIMULATING FACTOR NOS
     Indication: MANTLE CELL LYMPHOMA
     Dates: start: 20180207
  5. ETOPOSIDE. [Concomitant]
     Active Substance: ETOPOSIDE
     Dosage: 200MG PER DAY, DAY 1 TO DAY3
     Dates: start: 20180207
  6. MABTHERA [Suspect]
     Active Substance: RITUXIMAB
     Dosage: -7DAY
     Route: 065
     Dates: start: 20180302
  7. ACTEMRA [Suspect]
     Active Substance: TOCILIZUMAB
     Indication: CONGENITAL RUBELLA SYNDROME
     Route: 065
     Dates: start: 20180627
  8. CYTARABINE. [Concomitant]
     Active Substance: CYTARABINE
     Indication: MANTLE CELL LYMPHOMA
     Dates: start: 20171101
  9. LENALIDOMIDE [Concomitant]
     Active Substance: LENALIDOMIDE
     Indication: MANTLE CELL LYMPHOMA
     Dates: start: 20171101
  10. MABTHERA [Suspect]
     Active Substance: RITUXIMAB
     Route: 065
     Dates: start: 20180427
  11. CYCLOPHOSPHAMIDE. [Concomitant]
     Active Substance: CYCLOPHOSPHAMIDE
     Indication: MANTLE CELL LYMPHOMA
     Dates: start: 20170628
  12. BENDAMUSTINE [Concomitant]
     Active Substance: BENDAMUSTINE
     Indication: MANTLE CELL LYMPHOMA
     Dates: start: 20180113
  13. BUSULFAN. [Concomitant]
     Active Substance: BUSULFAN
     Indication: MANTLE CELL LYMPHOMA
     Dosage: -5~-2
     Dates: start: 20180613
  14. DOXORUBICIN [Concomitant]
     Active Substance: DOXORUBICIN
     Indication: MANTLE CELL LYMPHOMA
     Dates: start: 20170628
  15. VINCRISTINE [Concomitant]
     Active Substance: VINCRISTINE
     Indication: MANTLE CELL LYMPHOMA
     Dates: start: 20170628
  16. PREDNISONE. [Concomitant]
     Active Substance: PREDNISONE
     Indication: MANTLE CELL LYMPHOMA
     Dates: start: 20170628
  17. ETOPOSIDE. [Concomitant]
     Active Substance: ETOPOSIDE
     Dosage: -5D TO -2DAY
     Dates: start: 20180302
  18. BORTEZOMIB. [Concomitant]
     Active Substance: BORTEZOMIB
     Indication: MANTLE CELL LYMPHOMA
     Dosage: -7DAY
     Route: 065
     Dates: start: 20180302
  19. FLUDARABINE [Concomitant]
     Active Substance: FLUDARABINE PHOSPHATE
     Indication: MANTLE CELL LYMPHOMA
     Dosage: -5 TO -3
     Dates: start: 20180526
  20. CYTARABINE. [Concomitant]
     Active Substance: CYTARABINE
     Dosage: DAY1 TO DAY3
     Dates: start: 20180207
  21. CYTARABINE. [Concomitant]
     Active Substance: CYTARABINE
     Dosage: 200MG/M2/DAY,-5D TO -2DAY
     Dates: start: 20180302
  22. SEMUSTINE [Concomitant]
     Active Substance: SEMUSTINE
     Indication: MANTLE CELL LYMPHOMA
     Dosage: -6DAY
     Route: 065
     Dates: start: 20180302
  23. MELPHALAN. [Concomitant]
     Active Substance: MELPHALAN
     Indication: MANTLE CELL LYMPHOMA
     Dosage: -1DAY
     Dates: start: 20180302
  24. CYCLOPHOSPHAMIDE. [Concomitant]
     Active Substance: CYCLOPHOSPHAMIDE
     Dosage: -5 TO -3
     Dates: start: 20180526
  25. METHYLPREDNISOLONE. [Concomitant]
     Active Substance: METHYLPREDNISOLONE
     Indication: MANTLE CELL LYMPHOMA
     Dates: start: 20171101
  26. CISPLATIN. [Concomitant]
     Active Substance: CISPLATIN
     Indication: MANTLE CELL LYMPHOMA
     Dates: start: 20171101
  27. FLUDARABINE [Concomitant]
     Active Substance: FLUDARABINE PHOSPHATE
     Dosage: -6~-2
     Dates: start: 20180613

REACTIONS (9)
  - Platelet count decreased [Unknown]
  - Intentional product use issue [Unknown]
  - White blood cell count decreased [Unknown]
  - Hyperpyrexia [Unknown]
  - Temperature intolerance [Unknown]
  - Neutrophil count decreased [Unknown]
  - Chills [Unknown]
  - Haemoglobin decreased [Unknown]
  - Off label use [Unknown]

NARRATIVE: CASE EVENT DATE: 20180627
